FAERS Safety Report 8558644-1 (Version None)
Quarter: 2012Q3

REPORT INFORMATION
  Report Type: 
  Country: None (occurrence: None)
  Receive Date: 20120801
  Receipt Date: 20120720
  Transmission Date: 20120928
  Serious: Yes (Death, Hospitalization)
  Sender: FDA-Public Use
  Company Number: DE-ROCHE-1081957

PATIENT
  Age: 52 Year
  Sex: Male
  Weight: 105.2 kg

DRUGS (6)
  1. PACLITAXEL [Suspect]
     Indication: NON-SMALL CELL LUNG CANCER
     Dosage: LAST DOSE ADMINISTERED 432 MG ON 05/JUNE/2012
     Route: 042
     Dates: start: 20120424
  2. IBUPROFEN [Concomitant]
  3. MEGF0444A (ANTI-EGFL7) [Suspect]
     Indication: NON-SMALL CELL LUNG CANCER
     Dosage: LAST DOSE - 05/JUNE/2012, 605 MG
     Route: 042
     Dates: start: 20120424
  4. AVASTIN [Suspect]
     Indication: NON-SMALL CELL LUNG CANCER
     Dosage: LAST DOSE ADMINISTERED 1575 MG ON 05/JUNE/2012
     Route: 042
     Dates: start: 20120424
  5. CARBOPLATIN [Suspect]
     Indication: NON-SMALL CELL LUNG CANCER
     Dosage: LAST DOSE ADMINISTERED WAS 929 MG ON 05/JUN/2012
     Route: 042
     Dates: start: 20120424
  6. DICLOFENAC SODIUM [Concomitant]

REACTIONS (1)
  - GASTRIC ULCER HAEMORRHAGE [None]
